FAERS Safety Report 15708773 (Version 2)
Quarter: 2019Q1

REPORT INFORMATION
  Report Type: Spontaneous
  Country: US (occurrence: US)
  Receive Date: 20181211
  Receipt Date: 20190124
  Transmission Date: 20190417
  Serious: No
  Sender: FDA-Public Use
  Company Number: US-ALKERMES INC.-ALK-2018-006673

PATIENT
  Age: 26 Year
  Sex: Male
  Weight: 81.63 kg

DRUGS (1)
  1. VIVITROL [Suspect]
     Active Substance: NALTREXONE
     Indication: DRUG USE DISORDER
     Dosage: 380 MG, QMO
     Route: 030
     Dates: start: 20181015

REACTIONS (4)
  - Abnormal behaviour [Unknown]
  - Imprisonment [Unknown]
  - Drug screen positive [Unknown]
  - Euphoric mood [Unknown]

NARRATIVE: CASE EVENT DATE: 201811
